FAERS Safety Report 16660380 (Version 1)
Quarter: 2019Q3

REPORT INFORMATION
  Report Type: Spontaneous
  Country: US (occurrence: US)
  Receive Date: 20190619
  Receipt Date: 20190619
  Transmission Date: 20191004
  Serious: Yes (Hospitalization)
  Sender: FDA-Public Use
  Company Number: None

PATIENT
  Sex: Female

DRUGS (23)
  1. CEPHALEXIN CAP [Concomitant]
  2. VITAMIN D3 CAP [Concomitant]
  3. ERIVEDGE [Suspect]
     Active Substance: VISMODEGIB
     Indication: NEOPLASM MALIGNANT
     Route: 048
     Dates: start: 20181206
  4. AMOX/K CLAV TAB [Concomitant]
  5. HYDRALAZINE TAB [Concomitant]
  6. MULTI VITAMIN TAB MINERALS [Concomitant]
  7. POT CHLORIDRE CAP [Concomitant]
  8. BUMETANIDE TAB [Concomitant]
  9. PREDNISONE TAB [Concomitant]
     Active Substance: PREDNISONE
  10. SORIATANE CAP [Concomitant]
  11. AMLODIPINE TAB [Concomitant]
  12. ATORVASTATIN TAB [Concomitant]
     Active Substance: ATORVASTATIN
  13. CARB/LEVO TAB [Concomitant]
  14. FLUOROMETHOL SUS [Concomitant]
  15. LOSARTAN POT TAB [Concomitant]
  16. TACROLIMUS CAP [Concomitant]
     Active Substance: TACROLIMUS
  17. METORPP [Concomitant]
  18. ASPIRIN LOW TAB [Concomitant]
  19. TBA [Concomitant]
  20. SIROLIMUS TAB [Concomitant]
     Active Substance: SIROLIMUS
  21. SUMATRIPTAN TAB [Concomitant]
  22. HUMULIN R INJ [Concomitant]
  23. LANTUS INJ [Concomitant]

REACTIONS (1)
  - Cystitis [None]
